FAERS Safety Report 9835363 (Version 1)
Quarter: 2014Q1

REPORT INFORMATION
  Report Type: Spontaneous
  Country: US (occurrence: US)
  Receive Date: 20140122
  Receipt Date: 20140122
  Transmission Date: 20141002
  Serious: No
  Sender: FDA-Public Use
  Company Number: US-BRISTOL-MYERS SQUIBB COMPANY-19502608

PATIENT
  Sex: Female

DRUGS (1)
  1. ELIQUIS [Suspect]
     Dosage: TAKING HALF OF THE TABLET,1 BOX OF 14 TABLET SAMPLES

REACTIONS (2)
  - Vertigo [Unknown]
  - Wrong technique in drug usage process [Unknown]
